FAERS Safety Report 17842068 (Version 8)
Quarter: 2022Q1

REPORT INFORMATION
  Report Type: Report from Study
  Country: US (occurrence: US)
  Receive Date: 20200529
  Receipt Date: 20220127
  Transmission Date: 20220423
  Serious: Yes (Other)
  Sender: FDA-Public Use
  Company Number: US-NOVARTISPH-NVSC2020US147740

PATIENT
  Age: 0 Year
  Sex: Female
  Weight: 7.78 kg

DRUGS (1)
  1. ZOLGENSMA [Suspect]
     Active Substance: ONASEMNOGENE ABEPARVOVEC-XIOI
     Indication: Spinal muscular atrophy
     Dosage: 116 DF, ONCE/SINGLE
     Route: 042
     Dates: start: 20200520

REACTIONS (8)
  - Pericardial effusion [Unknown]
  - Irritability [Recovered/Resolved]
  - Rhinorrhoea [Unknown]
  - Effusion [Unknown]
  - Troponin I increased [Unknown]
  - Troponin increased [Unknown]
  - Troponin T increased [Unknown]
  - Pyrexia [Recovered/Resolved]

NARRATIVE: CASE EVENT DATE: 20200806
